FAERS Safety Report 20673973 (Version 1)
Quarter: 2022Q2

REPORT INFORMATION
  Report Type: Spontaneous
  Country: IT (occurrence: None)
  Receive Date: 20220405
  Receipt Date: 20220405
  Transmission Date: 20220720
  Serious: Yes (Other)
  Sender: FDA-Public Use
  Company Number: None

PATIENT
  Age: 43 Year
  Sex: Female
  Weight: 47 kg

DRUGS (2)
  1. PACLITAXEL [Suspect]
     Active Substance: PACLITAXEL
     Indication: Breast cancer
     Route: 042
     Dates: start: 20210916, end: 20211015
  2. GONADORELIN [Concomitant]
     Active Substance: GONADORELIN
     Indication: Breast cancer stage III
     Dosage: 3,75 MG / 2ML
     Route: 030
     Dates: start: 20210616

REACTIONS (3)
  - Allodynia [Recovering/Resolving]
  - Paraesthesia [Recovering/Resolving]
  - Hyperaesthesia [Recovering/Resolving]

NARRATIVE: CASE EVENT DATE: 20211016
